FAERS Safety Report 7763334-9 (Version None)
Quarter: 2011Q3

REPORT INFORMATION
  Report Type: 
  Country: None (occurrence: None)
  Receive Date: 20110920
  Receipt Date: 20110912
  Transmission Date: 20111222
  Serious: Yes (Other)
  Sender: FDA-Public Use
  Company Number: JP-B.I. PHARMACEUTICALS,INC./RIDGEFIELD-2011-BP-20800NB

PATIENT
  Age: 93 Year
  Sex: Male
  Weight: 47 kg

DRUGS (3)
  1. PRADAXA [Suspect]
     Indication: ATRIAL FIBRILLATION
     Dosage: 150 MG
     Route: 048
     Dates: end: 20110813
  2. PRADAXA [Suspect]
     Dosage: 150 MG
     Route: 048
  3. ULCERLMIN [Concomitant]
     Route: 065

REACTIONS (3)
  - DRUG INEFFECTIVE [None]
  - HAEMATOCHEZIA [None]
  - CEREBRAL INFARCTION [None]
